FAERS Safety Report 24088513 (Version 1)
Quarter: 2024Q3

REPORT INFORMATION
  Report Type: Spontaneous
  Country: US (occurrence: US)
  Receive Date: 20240715
  Receipt Date: 20240715
  Transmission Date: 20241016
  Serious: Yes (Hospitalization, Other)
  Sender: APOTEX
  Company Number: US-APOTEX-2024AP008076

PATIENT
  Sex: Female

DRUGS (1)
  1. BUPROPION [Suspect]
     Active Substance: BUPROPION
     Indication: Product used for unknown indication
     Dosage: UNK
     Route: 065

REACTIONS (11)
  - Status epilepticus [Recovered/Resolved]
  - Encephalopathy [Recovered/Resolved]
  - Brain injury [Recovered/Resolved]
  - Areflexia [Recovered/Resolved]
  - Reflexes abnormal [Recovered/Resolved]
  - Electrocardiogram QT prolonged [Recovering/Resolving]
  - Overdose [Recovering/Resolving]
  - Electrocardiogram QRS complex prolonged [Recovering/Resolving]
  - Suicide attempt [Unknown]
  - Mydriasis [Recovering/Resolving]
  - Hypotension [Recovering/Resolving]
